FAERS Safety Report 21433875 (Version 4)
Quarter: 2022Q4

REPORT INFORMATION
  Report Type: Spontaneous
  Country: CA (occurrence: CA)
  Receive Date: 20221010
  Receipt Date: 20221121
  Transmission Date: 20230113
  Serious: Yes (Other)
  Sender: FDA-Public Use
  Company Number: CA-CELLTRION INC.-2022CA016344

PATIENT

DRUGS (10)
  1. INFLECTRA [Suspect]
     Active Substance: INFLIXIMAB-DYYB
     Indication: Colitis ulcerative
     Dosage: 5 MG/KG, AT WEEK 0, 2, 6, THEN EVERY 8 WEEKS (FIRST DOSE IN HOSPITAL)
     Route: 042
     Dates: start: 20220224, end: 20220929
  2. INFLECTRA [Suspect]
     Active Substance: INFLIXIMAB-DYYB
     Dosage: 5 MG/KG, AT WEEK 0, 2, 6, THEN EVERY 8 WEEKS (FIRST DOSE IN HOSPITAL)
     Route: 042
     Dates: start: 20220318
  3. INFLECTRA [Suspect]
     Active Substance: INFLIXIMAB-DYYB
     Dosage: 5 MG/KG, AT WEEK 0, 2, 6, THEN EVERY 8 WEEKS (FIRST DOSE IN HOSPITAL)
     Route: 042
     Dates: start: 20220414
  4. INFLECTRA [Suspect]
     Active Substance: INFLIXIMAB-DYYB
     Dosage: 5 MG/KG, AT WEEK 0, 2, 6, THEN EVERY 8 WEEKS
     Route: 042
     Dates: start: 20220804
  5. INFLECTRA [Suspect]
     Active Substance: INFLIXIMAB-DYYB
     Dosage: 5 MG/KG, AT WEEK 0, 2, 6, THEN EVERY 8 WEEKS
     Route: 042
     Dates: start: 20220929
  6. INFLECTRA [Suspect]
     Active Substance: INFLIXIMAB-DYYB
     Dosage: 1 DF, STAT DOSE AT 5MG/KG THEN MAINTENANCE AT 10MG/KG - FREQUENCY TO CONFIRM - NOT YET STARTED
     Route: 042
     Dates: start: 20221014
  7. AZATHIOPRINE [Concomitant]
     Active Substance: AZATHIOPRINE
     Dosage: UNK
     Route: 065
     Dates: start: 2020
  8. PREDNISONE [Concomitant]
     Active Substance: PREDNISONE
     Dosage: 1 DF
     Dates: start: 2022
  9. RIVASTIGMINE [Concomitant]
     Active Substance: RIVASTIGMINE
     Indication: Memory impairment
     Dosage: UNK (2 WEEKS AGO )
     Dates: start: 2022
  10. RIVASTIGMINE [Concomitant]
     Active Substance: RIVASTIGMINE
     Dosage: 1 DF 4.6MG
     Route: 023
     Dates: start: 20220331

REACTIONS (6)
  - Haematochezia [Not Recovered/Not Resolved]
  - Colitis ulcerative [Not Recovered/Not Resolved]
  - Weight decreased [Unknown]
  - Decreased appetite [Not Recovered/Not Resolved]
  - Defaecation urgency [Not Recovered/Not Resolved]
  - Off label use [Unknown]

NARRATIVE: CASE EVENT DATE: 20220101
